FAERS Safety Report 9393594 (Version 1)
Quarter: 2013Q3

REPORT INFORMATION
  Report Type: Spontaneous
  Country: GB (occurrence: GB)
  Receive Date: 20130710
  Receipt Date: 20130710
  Transmission Date: 20140515
  Serious: Yes (Hospitalization)
  Sender: FDA-Public Use
  Company Number: GB-009507513-1307GBR001590

PATIENT
  Age: 75 Year
  Sex: Female

DRUGS (12)
  1. ALENDRONATE SODIUM [Suspect]
     Dosage: 70 MG, 1/ 1 WEEKS
     Route: 048
     Dates: end: 20130618
  2. ALLOPURINOL [Concomitant]
  3. AMITRIPTYLINE HYDROCHLORIDE [Concomitant]
  4. ATENOLOL [Concomitant]
  5. CAPTOPRIL [Concomitant]
  6. BENSERAZIDE HYDROCHLORIDE (+) LEVODOPA [Concomitant]
  7. FELODIPINE [Concomitant]
  8. IBUPROFEN [Concomitant]
  9. OMEPRAZOLE [Concomitant]
  10. ACETAMINOPHEN [Concomitant]
  11. SIMVASTATIN [Concomitant]
  12. TRAMADOL HYDROCHLORIDE [Concomitant]

REACTIONS (1)
  - Stress fracture [Recovered/Resolved with Sequelae]
